FAERS Safety Report 10177992 (Version 1)
Quarter: 2014Q2

REPORT INFORMATION
  Report Type: Spontaneous
  Country: CA (occurrence: CA)
  Receive Date: 20140516
  Receipt Date: 20140516
  Transmission Date: 20141212
  Serious: Yes (Hospitalization)
  Sender: FDA-Public Use
  Company Number: PHHY2014CA057295

PATIENT
  Age: 59 Year
  Sex: Female

DRUGS (1)
  1. ASCORBIC ACID [Suspect]
     Indication: UTERINE LEIOMYOSARCOMA
     Dosage: OVER 4 G, DAILY
     Route: 048

REACTIONS (6)
  - Nephropathy [Not Recovered/Not Resolved]
  - Renal injury [Not Recovered/Not Resolved]
  - Renal failure acute [Not Recovered/Not Resolved]
  - Hypervolaemia [Not Recovered/Not Resolved]
  - General physical health deterioration [Not Recovered/Not Resolved]
  - Urine oxalate [Not Recovered/Not Resolved]
